FAERS Safety Report 4539967-X (Version None)
Quarter: 2004Q4

REPORT INFORMATION
  Report Type: 
  Country: None (occurrence: None)
  Receive Date: 20041223
  Receipt Date: 20041130
  Transmission Date: 20050328
  Serious: Yes (Hospitalization, Other)
  Sender: FDA-Public Use
  Company Number: 2004106757

PATIENT
  Age: 21 Year
  Sex: Female
  Weight: 104.3273 kg

DRUGS (2)
  1. BEXTRA [Suspect]
     Indication: HEADACHE
     Dosage: 10 MG (10 MG, 1 IN 1 D), ORAL
     Route: 048
     Dates: start: 20040430, end: 20040503
  2. NORMENSAL (ETHINYLESTRADIOL, NORETHISTERONE) [Suspect]
     Indication: CONTRACEPTION

REACTIONS (4)
  - CEREBRAL THROMBOSIS [None]
  - CONVULSION [None]
  - DRUG INTERACTION [None]
  - HEADACHE [None]
